FAERS Safety Report 10268469 (Version 3)
Quarter: 2014Q3

REPORT INFORMATION
  Report Type: Report from Study
  Country: US (occurrence: US)
  Receive Date: 20140630
  Receipt Date: 20140710
  Transmission Date: 20150326
  Serious: Yes (Hospitalization)
  Sender: FDA-Public Use
  Company Number: US-SA-2013SA118051

PATIENT
  Age: 58 Year
  Sex: Female

DRUGS (1)
  1. AUBAGIO [Suspect]
     Active Substance: TERIFLUNOMIDE
     Indication: MULTIPLE SCLEROSIS
     Dosage: DOSE: 14 (UNITS UNSPECIFIED)
     Route: 048
     Dates: start: 20131007, end: 20140623

REACTIONS (6)
  - Vertebral lesion [Not Recovered/Not Resolved]
  - Multiple sclerosis relapse [Not Recovered/Not Resolved]
  - Neuralgia [Not Recovered/Not Resolved]
  - Diarrhoea [Unknown]
  - Gait disturbance [Not Recovered/Not Resolved]
  - Alopecia [Unknown]
